FAERS Safety Report 13895458 (Version 1)
Quarter: 2017Q3

REPORT INFORMATION
  Report Type: Spontaneous
  Country: US (occurrence: US)
  Receive Date: 20170819
  Receipt Date: 20170819
  Transmission Date: 20171127
  Serious: Yes (Life-Threatening, Hospitalization, Disabling, Other)
  Sender: FDA-Public Use
  Company Number: None

PATIENT
  Sex: Female
  Weight: 60.75 kg

DRUGS (2)
  1. DAILY VIATAMIN [Concomitant]
  2. LAMICTAL [Suspect]
     Active Substance: LAMOTRIGINE
     Indication: MOOD ALTERED
     Dosage: ?          QUANTITY:1 TABLET(S);?
     Route: 048
     Dates: start: 20170315, end: 20170420

REACTIONS (6)
  - Pneumonia [None]
  - Arthralgia [None]
  - Skin exfoliation [None]
  - Stevens-Johnson syndrome [None]
  - Therapy change [None]
  - Alopecia [None]

NARRATIVE: CASE EVENT DATE: 20170409
